FAERS Safety Report 7067922-7 (Version None)
Quarter: 2010Q4

REPORT INFORMATION
  Report Type: 
  Country: None (occurrence: None)
  Receive Date: 20101028
  Receipt Date: 20101019
  Transmission Date: 20110411
  Serious: Yes (Hospitalization)
  Sender: FDA-Public Use
  Company Number: US-ASTRAZENECA-2010SE49410

PATIENT
  Age: 19 Year
  Sex: Female
  Weight: 108.9 kg

DRUGS (3)
  1. SEROQUEL [Suspect]
     Indication: SCHIZOPHRENIA
     Route: 048
     Dates: start: 20090101, end: 20101001
  2. SEROQUEL [Suspect]
     Route: 048
     Dates: start: 20101001
  3. COGENTIN [Concomitant]

REACTIONS (3)
  - DRUG DOSE OMISSION [None]
  - SCHIZOPHRENIA [None]
  - WEIGHT INCREASED [None]
